FAERS Safety Report 7978767-5 (Version None)
Quarter: 2011Q4

REPORT INFORMATION
  Report Type: 
  Country: None (occurrence: None)
  Receive Date: 20111214
  Receipt Date: 20111207
  Transmission Date: 20120403
  Serious: Yes (Hospitalization)
  Sender: FDA-Public Use
  Company Number: DE-SANOFI-AVENTIS-2011SA053489

PATIENT
  Age: 60 Year
  Sex: Female
  Weight: 90 kg

DRUGS (8)
  1. DOCETAXEL [Suspect]
     Indication: BREAST CANCER
     Route: 041
     Dates: start: 20110516, end: 20110516
  2. DEXAMETHASONE [Concomitant]
     Indication: PROPHYLAXIS
     Route: 048
  3. UROMITEXAN [Concomitant]
     Indication: PROPHYLAXIS
     Route: 042
  4. DOCETAXEL [Suspect]
     Route: 041
  5. CYCLOPHOSPHAMIDE [Suspect]
     Indication: BREAST CANCER
     Route: 041
     Dates: start: 20110516, end: 20110516
  6. CYCLOPHOSPHAMIDE [Suspect]
     Route: 041
  7. DEXAMETHASONE [Concomitant]
     Route: 042
  8. GRANISETRON [Concomitant]
     Indication: PROPHYLAXIS
     Route: 042

REACTIONS (1)
  - RESTRICTIVE CARDIOMYOPATHY [None]
